FAERS Safety Report 7909517-6 (Version None)
Quarter: 2011Q4

REPORT INFORMATION
  Report Type: 
  Country: None (occurrence: None)
  Receive Date: 20111111
  Receipt Date: 20111102
  Transmission Date: 20120403
  Serious: Yes (Other)
  Sender: FDA-Public Use
  Company Number: US-BAYER-2011-040463

PATIENT
  Age: 31 Year
  Sex: Female
  Weight: 78 kg

DRUGS (6)
  1. ACETAMINOPHEN [Concomitant]
     Dosage: UNK
     Dates: start: 20000101
  2. YAZ [Suspect]
     Indication: ORAL CONTRACEPTION
     Dosage: UNK
     Dates: start: 20061001, end: 20061201
  3. YASMIN [Suspect]
     Indication: PREMENSTRUAL SYNDROME
     Dosage: UNK
     Dates: start: 20070101, end: 20070201
  4. YAZ [Suspect]
     Indication: PREMENSTRUAL SYNDROME
     Dosage: UNK
     Dates: start: 20070301, end: 20091001
  5. YASMIN [Suspect]
     Indication: ORAL CONTRACEPTION
     Dosage: UNK
     Dates: start: 20060201, end: 20060601
  6. NAPROXEN (ALEVE) [Concomitant]
     Dosage: UNK
     Dates: start: 20000101

REACTIONS (7)
  - INJURY [None]
  - ANHEDONIA [None]
  - GALLBLADDER INJURY [None]
  - CHOLECYSTITIS [None]
  - PAIN [None]
  - EMOTIONAL DISTRESS [None]
  - ANXIETY [None]
